FAERS Safety Report 15362371 (Version 1)
Quarter: 2018Q3

REPORT INFORMATION
  Report Type: Spontaneous
  Country: US (occurrence: US)
  Receive Date: 20180831
  Receipt Date: 20180831
  Transmission Date: 20181010
  Serious: No
  Sender: FDA-Public Use
  Company Number: None

PATIENT
  Sex: Female
  Weight: 80.74 kg

DRUGS (6)
  1. CENTRUM SILVER [Concomitant]
     Active Substance: MINERALS\VITAMINS
  2. LISINOPRIL. [Concomitant]
     Active Substance: LISINOPRIL
  3. THYROXINE [Concomitant]
     Active Substance: LEVOTHYROXINE
  4. ALENDRONATE SOD. TABS? GENERIC FOR FOSAMAX TABS [Suspect]
     Active Substance: ALENDRONATE SODIUM
     Indication: OSTEOPOROSIS
     Dosage: ?          QUANTITY:1 DF DOSAGE FORM;?
     Route: 048
     Dates: start: 2016, end: 20180808
  5. AREDS 2 [Concomitant]
     Active Substance: MINERALS\VITAMINS
  6. HYDROCHLOROTHIAZIDE. [Concomitant]
     Active Substance: HYDROCHLOROTHIAZIDE

REACTIONS (1)
  - Pain in extremity [None]
